FAERS Safety Report 4302794-2 (Version None)
Quarter: 2004Q1

REPORT INFORMATION
  Report Type: 
  Country: None (occurrence: None)
  Receive Date: 20040220
  Receipt Date: 20040209
  Transmission Date: 20041129
  Serious: Yes (Hospitalization, Other)
  Sender: FDA-Public Use
  Company Number: 2004005883

PATIENT
  Age: 59 Year
  Sex: Female
  Weight: 68.0396 kg

DRUGS (5)
  1. ZITHROMAX [Suspect]
     Indication: COUGH
     Dosage: ORAL
     Route: 048
     Dates: start: 20040109, end: 20040109
  2. AMARYL [Concomitant]
  3. LIPITOR [Concomitant]
  4. GUAIFENESIN (GUAIFENESIN) [Concomitant]
  5. CODEINE (CODEINE) [Concomitant]

REACTIONS (5)
  - APHONIA [None]
  - DYSPNOEA [None]
  - LARYNGOSPASM [None]
  - PERTUSSIS SEROLOGY POSITIVE [None]
  - THROAT TIGHTNESS [None]
